FAERS Safety Report 4293248-0 (Version None)
Quarter: 2004Q1

REPORT INFORMATION
  Report Type: 
  Country: None (occurrence: None)
  Receive Date: 20040126
  Receipt Date: 20031111
  Transmission Date: 20041129
  Serious: No
  Sender: FDA-Public Use
  Company Number: USA031152263

PATIENT
  Age: 73 Year
  Sex: Female

DRUGS (2)
  1. FORTEO [Suspect]
     Indication: OSTEOPOROSIS
  2. MINOCYCLINE HCL [Concomitant]

REACTIONS (5)
  - BLOOD CALCIUM INCREASED [None]
  - HEADACHE [None]
  - INSOMNIA [None]
  - NAUSEA [None]
  - ROSACEA [None]
